FAERS Safety Report 13567239 (Version 1)
Quarter: 2017Q2

REPORT INFORMATION
  Report Type: Spontaneous
  Country: US (occurrence: US)
  Receive Date: 20170522
  Receipt Date: 20170522
  Transmission Date: 20170830
  Serious: No
  Sender: FDA-Public Use
  Company Number: US-TEVA-759405ACC

PATIENT

DRUGS (1)
  1. MEXILETINE [Suspect]
     Active Substance: MEXILETINE
     Indication: MIGRAINE PROPHYLAXIS
     Dosage: 5 DOSAGE FORMS DAILY;

REACTIONS (1)
  - Gastrointestinal disorder [Unknown]
